FAERS Safety Report 6140267-5 (Version None)
Quarter: 2009Q2

REPORT INFORMATION
  Report Type: 
  Country: None (occurrence: None)
  Receive Date: 20090401
  Receipt Date: 20090330
  Transmission Date: 20091009
  Serious: Yes (Death)
  Sender: FDA-Public Use
  Company Number: CA-ROXANE LABORATORIES, INC.-2009-RO-00304RO

PATIENT
  Age: 1 Week

DRUGS (4)
  1. MIDAZOLAM HCL [Suspect]
     Indication: EXTUBATION
  2. MORPHINE [Suspect]
     Indication: EXTUBATION
     Route: 042
  3. PHENYTOIN [Suspect]
     Indication: HYPOXIC ENCEPHALOPATHY
  4. PHENOBARBITAL [Suspect]
     Indication: HYPOXIC ENCEPHALOPATHY

REACTIONS (1)
  - DEATH [None]
